FAERS Safety Report 10103359 (Version 1)
Quarter: 2014Q2

REPORT INFORMATION
  Report Type: Spontaneous
  Country: US (occurrence: US)
  Receive Date: 20140424
  Receipt Date: 20140424
  Transmission Date: 20141212
  Serious: No
  Sender: FDA-Public Use
  Company Number: US-BRISTOL-MYERS SQUIBB COMPANY-20342028

PATIENT
  Age: 81 Year
  Sex: Male
  Weight: 72.56 kg

DRUGS (2)
  1. ELIQUIS [Suspect]
     Indication: CEREBROVASCULAR ACCIDENT PROPHYLAXIS
     Dates: start: 201312
  2. COREG [Concomitant]

REACTIONS (1)
  - Peripheral swelling [Unknown]
